FAERS Safety Report 25529130 (Version 1)
Quarter: 2025Q3

REPORT INFORMATION
  Report Type: Spontaneous
  Country: CA (occurrence: CA)
  Receive Date: 20250708
  Receipt Date: 20250708
  Transmission Date: 20251020
  Serious: Yes (Other)
  Sender: MYLAN
  Company Number: CA-MYLANLABS-2025M1055514

PATIENT
  Sex: Female

DRUGS (32)
  1. CELEBREX [Suspect]
     Active Substance: CELECOXIB
     Indication: Product used for unknown indication
  2. CELEBREX [Suspect]
     Active Substance: CELECOXIB
     Route: 065
  3. CELEBREX [Suspect]
     Active Substance: CELECOXIB
     Route: 065
  4. CELEBREX [Suspect]
     Active Substance: CELECOXIB
  5. ANASTROZOLE [Suspect]
     Active Substance: ANASTROZOLE
     Indication: Product used for unknown indication
  6. ANASTROZOLE [Suspect]
     Active Substance: ANASTROZOLE
     Route: 065
  7. ANASTROZOLE [Suspect]
     Active Substance: ANASTROZOLE
     Route: 065
  8. ANASTROZOLE [Suspect]
     Active Substance: ANASTROZOLE
  9. BOTOX [Suspect]
     Active Substance: ONABOTULINUMTOXINA
     Indication: Product used for unknown indication
  10. BOTOX [Suspect]
     Active Substance: ONABOTULINUMTOXINA
     Route: 030
  11. BOTOX [Suspect]
     Active Substance: ONABOTULINUMTOXINA
     Route: 030
  12. BOTOX [Suspect]
     Active Substance: ONABOTULINUMTOXINA
  13. MAXALT [Suspect]
     Active Substance: RIZATRIPTAN BENZOATE
     Indication: Product used for unknown indication
  14. MAXALT [Suspect]
     Active Substance: RIZATRIPTAN BENZOATE
     Route: 065
  15. MAXALT [Suspect]
     Active Substance: RIZATRIPTAN BENZOATE
     Route: 065
  16. MAXALT [Suspect]
     Active Substance: RIZATRIPTAN BENZOATE
  17. UBRELVY [Suspect]
     Active Substance: UBROGEPANT
     Indication: Product used for unknown indication
  18. UBRELVY [Suspect]
     Active Substance: UBROGEPANT
     Route: 048
  19. UBRELVY [Suspect]
     Active Substance: UBROGEPANT
     Route: 048
  20. UBRELVY [Suspect]
     Active Substance: UBROGEPANT
  21. ATACAND [Concomitant]
     Active Substance: CANDESARTAN CILEXETIL
     Indication: Product used for unknown indication
  22. ATACAND [Concomitant]
     Active Substance: CANDESARTAN CILEXETIL
     Route: 065
  23. ATACAND [Concomitant]
     Active Substance: CANDESARTAN CILEXETIL
     Route: 065
  24. ATACAND [Concomitant]
     Active Substance: CANDESARTAN CILEXETIL
  25. GRANISETRON HYDROCHLORIDE [Concomitant]
     Active Substance: GRANISETRON HYDROCHLORIDE
     Indication: Product used for unknown indication
  26. GRANISETRON HYDROCHLORIDE [Concomitant]
     Active Substance: GRANISETRON HYDROCHLORIDE
     Route: 065
  27. GRANISETRON HYDROCHLORIDE [Concomitant]
     Active Substance: GRANISETRON HYDROCHLORIDE
     Route: 065
  28. GRANISETRON HYDROCHLORIDE [Concomitant]
     Active Substance: GRANISETRON HYDROCHLORIDE
  29. ONDANSETRON HYDROCHLORIDE [Concomitant]
     Active Substance: ONDANSETRON HYDROCHLORIDE
     Indication: Product used for unknown indication
  30. ONDANSETRON HYDROCHLORIDE [Concomitant]
     Active Substance: ONDANSETRON HYDROCHLORIDE
     Route: 065
  31. ONDANSETRON HYDROCHLORIDE [Concomitant]
     Active Substance: ONDANSETRON HYDROCHLORIDE
     Route: 065
  32. ONDANSETRON HYDROCHLORIDE [Concomitant]
     Active Substance: ONDANSETRON HYDROCHLORIDE

REACTIONS (5)
  - Adverse drug reaction [Unknown]
  - Bone pain [Unknown]
  - Breast cancer female [Unknown]
  - Myalgia [Unknown]
  - Pruritus [Unknown]
